FAERS Safety Report 13183535 (Version 1)
Quarter: 2017Q1

REPORT INFORMATION
  Report Type: Spontaneous
  Country: GB (occurrence: GB)
  Receive Date: 20170203
  Receipt Date: 20170203
  Transmission Date: 20170428
  Serious: Yes (Other)
  Sender: FDA-Public Use
  Company Number: GB-ASTRAZENECA-2017SE09678

PATIENT
  Age: 25 Year
  Sex: Female
  Weight: 48 kg

DRUGS (1)
  1. ZOLADEX [Suspect]
     Active Substance: GOSERELIN ACETATE
     Indication: ADENOMYOSIS
     Route: 051
     Dates: start: 201602, end: 201606

REACTIONS (7)
  - Vitamin D deficiency [Not Recovered/Not Resolved]
  - Amnesia [Recovering/Resolving]
  - Injection site urticaria [Recovered/Resolved with Sequelae]
  - Personality change [Recovering/Resolving]
  - Fatigue [Recovering/Resolving]
  - Fibromyalgia [Not Recovered/Not Resolved]
  - Folate deficiency [Not Recovered/Not Resolved]
